FAERS Safety Report 22624341 (Version 1)
Quarter: 2023Q2

REPORT INFORMATION
  Report Type: Spontaneous
  Country: US (occurrence: None)
  Receive Date: 20230619
  Receipt Date: 20230619
  Transmission Date: 20230722
  Serious: No
  Sender: FDA-Public Use
  Company Number: None

PATIENT
  Age: 51 Year
  Sex: Female

DRUGS (1)
  1. TRULICITY [Suspect]
     Active Substance: DULAGLUTIDE

REACTIONS (5)
  - Nausea [None]
  - Malaise [None]
  - Eructation [None]
  - Dysgeusia [None]
  - Memory impairment [None]

NARRATIVE: CASE EVENT DATE: 20230617
